FAERS Safety Report 11400704 (Version 1)
Quarter: 2015Q3

REPORT INFORMATION
  Report Type: Spontaneous
  Country: US (occurrence: US)
  Receive Date: 20150820
  Receipt Date: 20150820
  Transmission Date: 20151125
  Serious: No
  Sender: FDA-Public Use
  Company Number: US-PFIZER INC-2015277586

PATIENT
  Age: 59 Year
  Sex: Female

DRUGS (6)
  1. PENICILLIN VK [Suspect]
     Active Substance: PENICILLIN V POTASSIUM
     Dosage: 250 MG, UNK
  2. CELEBREX [Suspect]
     Active Substance: CELECOXIB
     Dosage: 100 MG, UNK
  3. CLARITHROMYCIN. [Suspect]
     Active Substance: CLARITHROMYCIN
     Dosage: 250 MG, UNK
  4. FENOPROFEN CALCIUM. [Suspect]
     Active Substance: FENOPROFEN CALCIUM
     Dosage: 400 MG, UNK
  5. NALFON [Suspect]
     Active Substance: FENOPROFEN CALCIUM
     Dosage: 400 MG, UNK
  6. METHOTREXATE [Suspect]
     Active Substance: METHOTREXATE
     Dosage: 2.5 MG, UNK

REACTIONS (1)
  - Drug hypersensitivity [Unknown]
